FAERS Safety Report 8241598-5 (Version None)
Quarter: 2012Q1

REPORT INFORMATION
  Report Type: 
  Country: None (occurrence: None)
  Receive Date: 20120328
  Receipt Date: 20120322
  Transmission Date: 20120608
  Serious: Yes (Other)
  Sender: FDA-Public Use
  Company Number: CHPA2012FI005485

PATIENT
  Sex: Male

DRUGS (1)
  1. NICOTINE [Suspect]
     Indication: SMOKING CESSATION THERAPY
     Dosage: 0.5 DF, UNK, SEVERAL MONTHS

REACTIONS (6)
  - HAEMATOCHEZIA [None]
  - ABNORMAL FAECES [None]
  - ANAL PRURITUS [None]
  - HAEMORRHOIDS [None]
  - DYSPEPSIA [None]
  - WRONG TECHNIQUE IN DRUG USAGE PROCESS [None]
